FAERS Safety Report 21687268 (Version 1)
Quarter: 2022Q4

REPORT INFORMATION
  Report Type: Spontaneous
  Country: US (occurrence: US)
  Receive Date: 20221206
  Receipt Date: 20221206
  Transmission Date: 20230113
  Serious: No
  Sender: FDA-Public Use
  Company Number: US-CSLP-61311687460-V12705663-2

PATIENT
  Age: 18 Year
  Sex: Female

DRUGS (1)
  1. ANTICOAGULANT SODIUM CITRATE [Suspect]
     Active Substance: SODIUM CITRATE
     Indication: Anticoagulant therapy
     Route: 050
     Dates: start: 20221111, end: 20221111

REACTIONS (11)
  - Hypoaesthesia [Unknown]
  - Peripheral coldness [Unknown]
  - Dizziness [Unknown]
  - Dyspnoea [Unknown]
  - Tachypnoea [Unknown]
  - Movement disorder [Recovered/Resolved]
  - Anxiety [Unknown]
  - Muscle spasms [Unknown]
  - Pain [Unknown]
  - Paraesthesia [Unknown]
  - Dyskinesia [Recovered/Resolved]

NARRATIVE: CASE EVENT DATE: 20221111
